FAERS Safety Report 18910924 (Version 1)
Quarter: 2021Q1

REPORT INFORMATION
  Report Type: Spontaneous
  Country: BE (occurrence: BE)
  Receive Date: 20210218
  Receipt Date: 20210218
  Transmission Date: 20210420
  Serious: Yes (Life-Threatening, Hospitalization)
  Sender: FDA-Public Use
  Company Number: BE-MYLANLABS-2021M1010276

PATIENT
  Age: 17 Year
  Sex: Female
  Weight: 62 kg

DRUGS (8)
  1. EPINEPHRINE. [Suspect]
     Active Substance: EPINEPHRINE
     Indication: CARDIAC ARREST
     Dosage: 0.1 MICROGRAM/KILOGRAM, QMINUTE...
     Route: 065
  2. PROPOFOL. [Concomitant]
     Active Substance: PROPOFOL
     Indication: SEDATIVE THERAPY
     Dosage: UNK
  3. MIDAZOLAM. [Concomitant]
     Active Substance: MIDAZOLAM
     Indication: SEDATIVE THERAPY
     Dosage: 15 MILLIGRAM, QH
     Route: 065
  4. NORADRENALINE                      /00127501/ [Suspect]
     Active Substance: NOREPINEPHRINE
     Indication: CARDIAC ARREST
     Dosage: 0.21 MICROGRAM/KILOGRAM, QMINUTE...
     Route: 065
  5. NORADRENALINE                      /00127501/ [Suspect]
     Active Substance: NOREPINEPHRINE
     Dosage: 0.51 MICROGRAM/KILOGRAM, QMINUTE...
     Route: 065
  6. NORADRENALINE                      /00127501/ [Suspect]
     Active Substance: NOREPINEPHRINE
     Dosage: 0.61 MICROGRAM/KILOGRAM, QMINUTE...
     Route: 065
  7. NORADRENALINE                      /00127501/ [Suspect]
     Active Substance: NOREPINEPHRINE
     Dosage: 1 MICROGRAM/KILOGRAM, QMINUTE....
     Route: 065
  8. DOBUTAMINE [Suspect]
     Active Substance: DOBUTAMINE HYDROCHLORIDE
     Indication: CARDIAC ARREST
     Dosage: 10 MICROGRAM/KILOGRAM, QMINUTE...
     Route: 065

REACTIONS (1)
  - Drug ineffective [Unknown]
